FAERS Safety Report 24605743 (Version 2)
Quarter: 2025Q3

REPORT INFORMATION
  Report Type: Other
  Country: EU (occurrence: EU)
  Receive Date: 20241111
  Receipt Date: 20250724
  Transmission Date: 20251021
  Serious: Yes (Hospitalization, Other)
  Sender: BIONPHARMA INC.
  Company Number: EU-Bion-014256

PATIENT
  Age: 29 Year
  Sex: Female

DRUGS (8)
  1. LEVETIRACETAM [Suspect]
     Active Substance: LEVETIRACETAM
     Indication: New onset refractory status epilepticus
  2. VALPROIC ACID [Suspect]
     Active Substance: VALPROIC ACID
     Indication: New onset refractory status epilepticus
  3. MIDAZOLAM [Concomitant]
     Active Substance: MIDAZOLAM
     Indication: New onset refractory status epilepticus
  4. PROPOFOL [Concomitant]
     Active Substance: PROPOFOL
     Indication: New onset refractory status epilepticus
  5. THIOPENTAL SODIUM [Concomitant]
     Active Substance: THIOPENTAL SODIUM
     Indication: New onset refractory status epilepticus
  6. ZONISAMIDE [Concomitant]
     Active Substance: ZONISAMIDE
     Indication: New onset refractory status epilepticus
  7. PHENYTOIN [Concomitant]
     Active Substance: PHENYTOIN
     Indication: New onset refractory status epilepticus
  8. CLONAZEPAM [Concomitant]
     Active Substance: CLONAZEPAM
     Indication: New onset refractory status epilepticus

REACTIONS (2)
  - Drug ineffective [Not Recovered/Not Resolved]
  - Brain oedema [Not Recovered/Not Resolved]
